FAERS Safety Report 24407321 (Version 1)
Quarter: 2024Q4

REPORT INFORMATION
  Report Type: Spontaneous
  Country: US (occurrence: US)
  Receive Date: 20241007
  Receipt Date: 20241007
  Transmission Date: 20250115
  Serious: Yes (Other)
  Sender: RADIUS PHARM
  Company Number: US-RADIUS HEALTH INC.-2024US007694

PATIENT
  Age: 71 Year
  Sex: Female

DRUGS (1)
  1. TYMLOS [Suspect]
     Active Substance: ABALOPARATIDE
     Indication: Product used for unknown indication
     Dosage: UNK
     Dates: start: 202405

REACTIONS (3)
  - Colitis ulcerative [Recovering/Resolving]
  - Restlessness [Unknown]
  - Flushing [Unknown]

NARRATIVE: CASE EVENT DATE: 20240621
